FAERS Safety Report 6644829-8 (Version None)
Quarter: 2010Q1

REPORT INFORMATION
  Report Type: 
  Country: None (occurrence: None)
  Receive Date: 20100322
  Receipt Date: 20100312
  Transmission Date: 20100710
  Serious: Yes (Other)
  Sender: FDA-Public Use
  Company Number: A0849982A

PATIENT
  Age: 79 Year
  Sex: Female

DRUGS (11)
  1. SORIATANE [Suspect]
     Indication: SQUAMOUS CELL CARCINOMA
     Dosage: 10MG PER DAY
     Route: 048
     Dates: start: 20100101
  2. SIMVASTATIN [Concomitant]
  3. LISINOPRIL [Concomitant]
  4. ATENOLOL [Concomitant]
  5. LUMIGAN [Concomitant]
  6. FOSAMAX [Concomitant]
  7. VITAMIN D [Concomitant]
  8. CALCIUM [Concomitant]
  9. VIT C [Concomitant]
  10. VITAMIN B COMPLEX CAP [Concomitant]
  11. FISH OIL [Concomitant]

REACTIONS (4)
  - DRUG ADMINISTRATION ERROR [None]
  - THERAPEUTIC RESPONSE UNEXPECTED [None]
  - VAGINAL DISCHARGE [None]
  - VAGINAL HAEMORRHAGE [None]
